FAERS Safety Report 6794477-4 (Version None)
Quarter: 2010Q2

REPORT INFORMATION
  Report Type: 
  Country: None (occurrence: None)
  Receive Date: 20100625
  Receipt Date: 20100618
  Transmission Date: 20101027
  Serious: Yes (Other)
  Sender: FDA-Public Use
  Company Number: CN-PFIZER INC-2010076178

PATIENT
  Age: 48 Year
  Sex: Female

DRUGS (1)
  1. MEDROL [Suspect]
     Dosage: 32 MG, UNK
     Route: 048

REACTIONS (4)
  - ANTI-HBC ANTIBODY POSITIVE [None]
  - HEPATITIS B E ANTIGEN POSITIVE [None]
  - HEPATITIS B SURFACE ANTIGEN POSITIVE [None]
  - HYPOTONIA [None]
